FAERS Safety Report 5867045-6 (Version None)
Quarter: 2008Q3

REPORT INFORMATION
  Report Type: 
  Country: None (occurrence: None)
  Receive Date: 20080902
  Receipt Date: 20080829
  Transmission Date: 20090109
  Serious: Yes (Other)
  Sender: FDA-Public Use
  Company Number: B0523680A

PATIENT
  Age: 42 Year
  Sex: Female

DRUGS (3)
  1. PAXIL [Suspect]
     Indication: PANIC DISORDER
     Dosage: 10MG PER DAY
     Route: 048
     Dates: start: 20080515, end: 20080714
  2. CHINESE MEDICINE [Concomitant]
     Indication: PANIC DISORDER
     Dosage: 2.5G THREE TIMES PER DAY
     Route: 048
     Dates: start: 20080515
  3. GASMOTIN [Concomitant]
     Indication: PANIC DISORDER
     Dosage: 5MG THREE TIMES PER DAY
     Route: 048
     Dates: start: 20080515, end: 20080602

REACTIONS (2)
  - HYPERGLYCAEMIA [None]
  - HYPERTENSION [None]
